FAERS Safety Report 5238358-6 (Version None)
Quarter: 2007Q1

REPORT INFORMATION
  Report Type: 
  Country: None (occurrence: None)
  Receive Date: 20070212
  Receipt Date: 20070212
  Transmission Date: 20070707
  Serious: Yes (Life-Threatening, Other)
  Sender: FDA-Public Use
  Company Number: None

PATIENT
  Sex: Female
  Weight: 51.2565 kg

DRUGS (2)
  1. SEROQUEL [Suspect]
     Indication: INSOMNIA
     Dosage: CURRENTLY AT 1/2 PILL OF 25MG 1/NIGHT PO
     Route: 048
     Dates: start: 20040101, end: 20070209
  2. SEROQUEL [Suspect]
     Indication: PSYCHOTIC DISORDER
     Dosage: CURRENTLY AT 1/2 PILL OF 25MG 1/NIGHT PO
     Route: 048
     Dates: start: 20040101, end: 20070209

REACTIONS (4)
  - BLOOD CHOLESTEROL INCREASED [None]
  - BLOOD TRIGLYCERIDES INCREASED [None]
  - GLUCOSE TOLERANCE IMPAIRED [None]
  - WEIGHT INCREASED [None]
